FAERS Safety Report 8259399-0 (Version None)
Quarter: 2012Q2

REPORT INFORMATION
  Report Type: 
  Country: None (occurrence: None)
  Receive Date: 20120404
  Receipt Date: 20120322
  Transmission Date: 20120825
  Serious: Yes (Other)
  Sender: FDA-Public Use
  Company Number: PT-MYLANLABS-2012S1006192

PATIENT
  Age: 45 Year
  Sex: Female

DRUGS (2)
  1. PAROXETINE [Suspect]
     Indication: PANIC ATTACK
     Route: 048
  2. DIAZEPAM [Concomitant]
     Indication: PRODUCT USED FOR UNKNOWN INDICATION

REACTIONS (10)
  - EYELID OEDEMA [None]
  - HYPERHIDROSIS [None]
  - SOMNOLENCE [None]
  - HEADACHE [None]
  - PANIC ATTACK [None]
  - LIP DISORDER [None]
  - VISION BLURRED [None]
  - ACTIVITIES OF DAILY LIVING IMPAIRED [None]
  - TINNITUS [None]
  - ASTHENIA [None]
